FAERS Safety Report 5693085-6 (Version None)
Quarter: 2008Q2

REPORT INFORMATION
  Report Type: 
  Country: None (occurrence: None)
  Receive Date: 20080402
  Receipt Date: 20080402
  Transmission Date: 20081010
  Serious: Yes (Other)
  Sender: FDA-Public Use
  Company Number: None

PATIENT
  Sex: Female
  Weight: 106.5953 kg

DRUGS (3)
  1. ENBREL [Suspect]
     Indication: RHEUMATOID ARTHRITIS
     Dosage: 50MG SQ QWKLY
     Route: 058
     Dates: start: 20070801, end: 20080101
  2. PLAQUENIL [Concomitant]
  3. PREDNISONE [Concomitant]

REACTIONS (1)
  - RENAL CELL CARCINOMA [None]
